FAERS Safety Report 9455223 (Version 1)
Quarter: 2013Q3

REPORT INFORMATION
  Report Type: Report from Study
  Country: BR (occurrence: BR)
  Receive Date: 20130813
  Receipt Date: 20130813
  Transmission Date: 20140515
  Serious: Yes (Other)
  Sender: FDA-Public Use
  Company Number: BR-BAYER-2013-086388

PATIENT
  Age: 42 Year
  Sex: Female

DRUGS (5)
  1. BETAFERON [Suspect]
     Indication: MULTIPLE SCLEROSIS
     Dosage: 1 ML, QOD
     Route: 058
     Dates: start: 201304
  2. BETAFERON [Suspect]
     Indication: MULTIPLE SCLEROSIS
     Dosage: 1 ML, QOD
     Route: 058
     Dates: start: 2013
  3. BETAJECT COMFORT [Suspect]
     Indication: DEVICE THERAPY
  4. LABIRIN [Concomitant]
     Indication: DIZZINESS
     Dosage: 1 DF, QD
     Route: 048
     Dates: start: 201112
  5. TERBINAFINE [Concomitant]
     Indication: ONYCHOMYCOSIS
     Dosage: 1 DF, QD
     Route: 048
     Dates: start: 201302

REACTIONS (4)
  - Injection site pain [Not Recovered/Not Resolved]
  - Migraine [Recovering/Resolving]
  - Injected limb mobility decreased [Recovered/Resolved]
  - Peripheral nerve injury [None]
